FAERS Safety Report 8686780 (Version 2)
Quarter: 2012Q4

REPORT INFORMATION
  Report Type: 
  Country: AU (occurrence: AU)
  Receive Date: 20120727
  Receipt Date: 20121025
  Transmission Date: 20130627
  Serious: Yes (Other)
  Sender: FDA-Public Use
  Company Number: AU-009507513-1207AUS006787

PATIENT

DRUGS (3)
  1. LIPEX [Suspect]
     Dosage: UNK
     Route: 048
     Dates: start: 20120718
  2. LIPEX [Suspect]
     Dosage: UNK
     Route: 048
     Dates: start: 2008, end: 2008
  3. PERINDOPRIL [Concomitant]

REACTIONS (6)
  - Renal failure [Unknown]
  - Dehydration [Unknown]
  - Vomiting [Unknown]
  - Myalgia [Unknown]
  - Diarrhoea [Recovered/Resolved]
  - White blood cell count increased [None]
